FAERS Safety Report 10062560 (Version 1)
Quarter: 2014Q2

REPORT INFORMATION
  Report Type: Report from Study
  Country: CN (occurrence: CN)
  Receive Date: 20140407
  Receipt Date: 20140407
  Transmission Date: 20141212
  Serious: Yes (Death)
  Sender: FDA-Public Use
  Company Number: CN-SA-2014SA042410

PATIENT
  Sex: 0

DRUGS (12)
  1. ANTI-THYMOCYTE GLOBULIN (RABBIT) [Suspect]
     Indication: BONE MARROW CONDITIONING REGIMEN
     Route: 065
  2. DEXAMETHASONE [Concomitant]
  3. GRANULOCYTE COLONY-STIMULATING FACTOR NOS [Concomitant]
     Route: 058
  4. ALL OTHER THERAPEUTIC PRODUCTS [Concomitant]
  5. BLOOD AND RELATED PRODUCTS [Concomitant]
  6. CYCLOSPORIN A [Concomitant]
     Indication: PROPHYLAXIS AGAINST GRAFT VERSUS HOST DISEASE
  7. MYCOPHENOLATE MOFETIL [Concomitant]
     Indication: PROPHYLAXIS AGAINST GRAFT VERSUS HOST DISEASE
     Route: 048
  8. MYCOPHENOLATE MOFETIL [Concomitant]
     Indication: PROPHYLAXIS AGAINST GRAFT VERSUS HOST DISEASE
     Route: 048
  9. METHOTREXATE [Concomitant]
     Indication: PROPHYLAXIS AGAINST GRAFT VERSUS HOST DISEASE
     Route: 042
  10. METHOTREXATE [Concomitant]
     Indication: PROPHYLAXIS AGAINST GRAFT VERSUS HOST DISEASE
     Dosage: ON DAY 3,5 AND 11 AFTER TRANSPLATATION
     Route: 042
  11. GANCICLOVIR [Concomitant]
     Indication: ANTIVIRAL PROPHYLAXIS
     Route: 042
  12. RITUXIMAB [Concomitant]
     Indication: PROPHYLAXIS

REACTIONS (1)
  - Post transplant lymphoproliferative disorder [Fatal]
